FAERS Safety Report 15209068 (Version 1)
Quarter: 2018Q3

REPORT INFORMATION
  Report Type: Spontaneous
  Country: JP (occurrence: JP)
  Receive Date: 20180727
  Receipt Date: 20180727
  Transmission Date: 20181010
  Serious: Yes (Hospitalization)
  Sender: FDA-Public Use
  Company Number: JP-BAYER-2018-136247

PATIENT
  Age: 70 Year
  Sex: Male

DRUGS (1)
  1. BAYASPIRIN 100 MG [Suspect]
     Active Substance: ASPIRIN
     Dosage: 100 MG, QD
     Route: 048
     Dates: start: 201702, end: 20180523

REACTIONS (4)
  - Hospitalisation [None]
  - Intentional product misuse [None]
  - Pruritus [None]
  - Eczema [None]

NARRATIVE: CASE EVENT DATE: 201803
